FAERS Safety Report 13697106 (Version 1)
Quarter: 2017Q2

REPORT INFORMATION
  Report Type: Spontaneous
  Country: US (occurrence: US)
  Receive Date: 20170627
  Receipt Date: 20170627
  Transmission Date: 20170830
  Serious: No
  Sender: FDA-Public Use
  Company Number: None

PATIENT
  Age: 78 Month
  Sex: Female
  Weight: 73.35 kg

DRUGS (2)
  1. FORTEO [Suspect]
     Active Substance: TERIPARATIDE
     Indication: OSTEOPOROSIS
     Dosage: ?          OTHER DOSE:MG;?
     Route: 058
  2. FORTEO [Suspect]
     Active Substance: TERIPARATIDE
     Indication: LUMBAR VERTEBRAL FRACTURE
     Dosage: ?          OTHER DOSE:MG;?
     Route: 058

REACTIONS (2)
  - Musculoskeletal pain [None]
  - Pain in extremity [None]
